FAERS Safety Report 24630771 (Version 1)
Quarter: 2024Q4

REPORT INFORMATION
  Report Type: Spontaneous
  Country: US (occurrence: None)
  Receive Date: 20241116
  Receipt Date: 20241116
  Transmission Date: 20250114
  Serious: Yes (Disabling)
  Sender: Public
  Company Number: None

PATIENT
  Age: 41 Year
  Sex: Female
  Weight: 72 kg

DRUGS (3)
  1. ATORVASTATIN [Suspect]
     Active Substance: ATORVASTATIN
     Indication: Blood cholesterol increased
     Dosage: OTHER QUANTITY : 1 TABLET(S);?FREQUENCY : AT BEDTIME;?
     Route: 048
     Dates: start: 20220714, end: 20220801
  2. VYVGART HYTRULO [Concomitant]
     Active Substance: EFGARTIGIMOD ALFA\HYALURONIDASE-QVFC
  3. LEVOTHYROXINE [Concomitant]
     Active Substance: LEVOTHYROXINE

REACTIONS (4)
  - Muscular weakness [None]
  - Dyspnoea [None]
  - Gait disturbance [None]
  - Myasthenia gravis [None]

NARRATIVE: CASE EVENT DATE: 20220720
